FAERS Safety Report 6910463-5 (Version None)
Quarter: 2010Q3

REPORT INFORMATION
  Report Type: 
  Country: None (occurrence: None)
  Receive Date: 20100806
  Receipt Date: 20100729
  Transmission Date: 20110219
  Serious: Yes (Life-Threatening, Hospitalization)
  Sender: FDA-Public Use
  Company Number: JP-PFIZER INC-2010092811

PATIENT
  Age: 38 Year
  Sex: Female

DRUGS (1)
  1. AMLODIPINE BESYLATE [Suspect]
     Dosage: 100 TABS
     Route: 048
     Dates: start: 20100726

REACTIONS (2)
  - DRUG TOXICITY [None]
  - OVERDOSE [None]
